FAERS Safety Report 11926380 (Version 1)
Quarter: 2016Q1

REPORT INFORMATION
  Report Type: Spontaneous
  Country: US (occurrence: None)
  Receive Date: 20160115
  Receipt Date: 20160115
  Transmission Date: 20160526
  Serious: No
  Sender: FDA-Public Use
  Company Number: None

PATIENT
  Age: 53 Year
  Sex: Male

DRUGS (2)
  1. VINORELBINE [Suspect]
     Active Substance: VINORELBINE\VINORELBINE TARTRATE
     Dosage: 56.4 MG IV INFUSION WEEKLY
     Dates: start: 20140708, end: 20140708
  2. GEMCITABINE [Suspect]
     Active Substance: GEMCITABINE\GEMCITABINE HYDROCHLORIDE
     Dosage: 800 MG/M2 IV INFUSIONS WEEKLY
     Dates: start: 20140521, end: 20140617

REACTIONS (11)
  - Jaundice [None]
  - Alanine aminotransferase increased [None]
  - Malignant neoplasm progression [None]
  - Hepatic enzyme increased [None]
  - Aspartate aminotransferase increased [None]
  - Hypotension [None]
  - Sepsis [None]
  - Gastrointestinal haemorrhage [None]
  - Intestinal obstruction [None]
  - Systemic inflammatory response syndrome [None]
  - Blood alkaline phosphatase increased [None]

NARRATIVE: CASE EVENT DATE: 20140701
